FAERS Safety Report 6825881-3 (Version None)
Quarter: 2010Q3

REPORT INFORMATION
  Report Type: 
  Country: None (occurrence: None)
  Receive Date: 20100707
  Receipt Date: 20100707
  Transmission Date: 20110219
  Serious: Yes (Life-Threatening, Hospitalization)
  Sender: FDA-Public Use
  Company Number: None

PATIENT
  Age: 75 Year
  Sex: Female
  Weight: 70.3075 kg

DRUGS (4)
  1. LOTREL [Suspect]
     Indication: CONSTIPATION
     Dosage: 2.5/10 MILLIGRAMS 1 CAP. EVERY EVENING
     Dates: start: 20090617
  2. LOTREL [Suspect]
     Indication: CONSTIPATION
     Dosage: 2.5/10 MILLIGRAMS 1 CAP. EVERY EVENING
     Dates: start: 20090618
  3. BENERDYRL [Concomitant]
  4. PREDNISONE [Concomitant]

REACTIONS (2)
  - CONSTIPATION [None]
  - SWELLING FACE [None]
